FAERS Safety Report 4677928-0 (Version None)
Quarter: 2005Q2

REPORT INFORMATION
  Report Type: 
  Country: None (occurrence: None)
  Receive Date: 20050527
  Receipt Date: 20050527
  Transmission Date: 20051028
  Serious: Yes (Other)
  Sender: FDA-Public Use
  Company Number: None

PATIENT
  Sex: Female
  Weight: 78 kg

DRUGS (2)
  1. FENTANYL [Suspect]
     Indication: HEADACHE
     Dosage: 50MCG IVP Q1HR  PRN  (11 DOSES)
     Route: 042
     Dates: start: 20050512, end: 20050517
  2. FENTANYL [Suspect]
     Indication: PAIN MANAGEMENT
     Dosage: 50MCG IVP Q1HR  PRN  (11 DOSES)
     Route: 042
     Dates: start: 20050512, end: 20050517

REACTIONS (1)
  - INTRACRANIAL PRESSURE INCREASED [None]
